FAERS Safety Report 4980843-6 (Version None)
Quarter: 2006Q2

REPORT INFORMATION
  Report Type: 
  Country: None (occurrence: None)
  Receive Date: 20060424
  Receipt Date: 20051201
  Transmission Date: 20061013
  Serious: Yes (Hospitalization, Other)
  Sender: FDA-Public Use
  Company Number: US-MERCK-0512USA00510

PATIENT
  Age: 46 Year
  Sex: Male
  Weight: 142 kg

DRUGS (2)
  1. VIOXX [Suspect]
     Indication: SHOULDER PAIN
     Route: 048
     Dates: start: 20010201, end: 20040901
  2. VIOXX [Suspect]
     Indication: POSTOPERATIVE ANALGESIA
     Route: 048
     Dates: start: 20010201, end: 20040901

REACTIONS (13)
  - ACUTE CORONARY SYNDROME [None]
  - ACUTE MYOCARDIAL INFARCTION [None]
  - ANGINA PECTORIS [None]
  - ANGINA UNSTABLE [None]
  - ANXIETY [None]
  - CARDIAC FAILURE CONGESTIVE [None]
  - CHEST DISCOMFORT [None]
  - CHEST PAIN [None]
  - CORONARY ARTERY DISEASE [None]
  - DYSPNOEA EXERTIONAL [None]
  - LOCALISED OEDEMA [None]
  - OEDEMA PERIPHERAL [None]
  - RENAL PAIN [None]
